FAERS Safety Report 19576990 (Version 1)
Quarter: 2021Q3

REPORT INFORMATION
  Report Type: Spontaneous
  Country: US (occurrence: US)
  Receive Date: 20210719
  Receipt Date: 20210719
  Transmission Date: 20211014
  Serious: No
  Sender: FDA-Public Use
  Company Number: US-GLENMARK PHARMACEUTICALS-2020GMK051136

PATIENT

DRUGS (2)
  1. MUPIROCIN OINTMENT USP, 2% [Suspect]
     Active Substance: MUPIROCIN
     Indication: FUNGAL SKIN INFECTION
     Dosage: UNK (TO PREVENT INFECTION IN SKIN LESION)
     Route: 065
  2. MUPIROCIN OINTMENT USP, 2% [Suspect]
     Active Substance: MUPIROCIN
     Indication: INFECTION PROPHYLAXIS
     Dosage: UNK, BID (OINTMENT USED FOR FUNGAL INFECTION ON TOES)
     Route: 061

REACTIONS (2)
  - Drug effective for unapproved indication [Unknown]
  - Prescription drug used without a prescription [Unknown]
